FAERS Safety Report 14176059 (Version 1)
Quarter: 2017Q4

REPORT INFORMATION
  Report Type: Spontaneous
  Country: US (occurrence: None)
  Receive Date: 20171109
  Receipt Date: 20171109
  Transmission Date: 20180321
  Serious: Yes (Disabling)
  Sender: FDA-Public Use
  Company Number: None

PATIENT
  Age: 26 Year
  Sex: Female
  Weight: 63.5 kg

DRUGS (7)
  1. MIRENA [Suspect]
     Active Substance: LEVONORGESTREL
  2. PEROXIDE [Concomitant]
     Active Substance: HYDROGEN PEROXIDE
  3. SPIRONOLACTONEL [Concomitant]
  4. RETIN-A [Concomitant]
     Active Substance: TRETINOIN
  5. ACTZONE [Concomitant]
  6. ALBUTEROL INHALER [Concomitant]
     Active Substance: ALBUTEROL
  7. BENZOYL [Concomitant]

REACTIONS (3)
  - Acne cystic [None]
  - Scar [None]
  - Disease recurrence [None]
